FAERS Safety Report 7064964-2 (Version None)
Quarter: 2010Q4

REPORT INFORMATION
  Report Type: 
  Country: None (occurrence: None)
  Receive Date: 20101027
  Receipt Date: 19930906
  Transmission Date: 20110411
  Serious: Yes (Death, Hospitalization)
  Sender: FDA-Public Use
  Company Number: JP-ROCHE-930900194001

PATIENT
  Sex: Male
  Weight: 58.5 kg

DRUGS (2)
  1. ROFERON-A [Suspect]
     Indication: RENAL CANCER
     Route: 030
     Dates: start: 19930522, end: 19930813
  2. ROFERON-A [Suspect]
     Route: 030
     Dates: start: 19930514, end: 19930519

REACTIONS (4)
  - CARDIAC FAILURE [None]
  - MANIA [None]
  - PNEUMONIA [None]
  - RENAL FAILURE [None]
